FAERS Safety Report 4476094-4 (Version None)
Quarter: 2004Q4

REPORT INFORMATION
  Report Type: 
  Country: None (occurrence: None)
  Receive Date: 20041012
  Receipt Date: 20040927
  Transmission Date: 20050328
  Serious: Yes (Death, Other)
  Sender: FDA-Public Use
  Company Number: 2004070944

PATIENT
  Age: 46 Year
  Sex: 0

DRUGS (2)
  1. SERTRALINE HYDROCHLORIDE [Suspect]
     Indication: ILL-DEFINED DISORDER
  2. IMIPRAMINE [Suspect]
     Indication: ILL-DEFINED DISORDER

REACTIONS (1)
  - CARDIO-RESPIRATORY ARREST [None]
